FAERS Safety Report 5675421-X (Version None)
Quarter: 2008Q1

REPORT INFORMATION
  Report Type: 
  Country: None (occurrence: None)
  Receive Date: 20080320
  Receipt Date: 20080307
  Transmission Date: 20080703
  Serious: Yes (Death, Life-Threatening, Hospitalization)
  Sender: FDA-Public Use
  Company Number: GR-GENENTECH-257763

PATIENT
  Age: 62 Year
  Sex: Female

DRUGS (4)
  1. MABTHERA [Suspect]
     Indication: RHEUMATOID ARTHRITIS
     Dates: end: 20080101
  2. STEROID NOS [Concomitant]
     Indication: DRUG USE FOR UNKNOWN INDICATION
  3. ANTIBIOTICS (NOT SPECIFIED) [Concomitant]
     Indication: PYREXIA
  4. OXYGEN [Concomitant]
     Indication: RESPIRATORY DISTRESS

REACTIONS (1)
  - CARDIAC ARREST [None]
